FAERS Safety Report 6831897-3 (Version None)
Quarter: 2010Q3

REPORT INFORMATION
  Report Type: 
  Country: None (occurrence: None)
  Receive Date: 20100707
  Receipt Date: 20100623
  Transmission Date: 20110219
  Serious: Yes (Hospitalization)
  Sender: FDA-Public Use
  Company Number: 014681

PATIENT
  Sex: Female

DRUGS (11)
  1. CERTOLIZUMAB PEGOL (CERTOLIZUMAB PEGOL) [Suspect]
     Indication: RHEUMATOID ARTHRITIS
     Dosage: (SUBCUTANEOUS)
     Route: 058
     Dates: start: 20100121, end: 20100609
  2. METHOTREXATE [Concomitant]
  3. FOLIC ACID [Concomitant]
  4. PREDNISOLONE [Concomitant]
  5. DICLOFENAC SODIUM [Concomitant]
  6. CELECOXIB [Concomitant]
  7. TEPRENONE [Concomitant]
  8. LANSOPRAZOLE [Concomitant]
  9. FERROUS FUMARATE [Concomitant]
  10. ALUMINIUM HYDROXIDE-MAGNESIUM CARBONATE GEL [Concomitant]
  11. DIFLUCORTOLONE VALERATE [Concomitant]

REACTIONS (4)
  - BACTERIAL TEST POSITIVE [None]
  - NEPHRITIS [None]
  - PROTEIN URINE PRESENT [None]
  - PYREXIA [None]
